FAERS Safety Report 8147488-0 (Version None)
Quarter: 2012Q1

REPORT INFORMATION
  Report Type: 
  Country: None (occurrence: None)
  Receive Date: 20120218
  Receipt Date: 20110216
  Transmission Date: 20120608
  Serious: No
  Sender: FDA-Public Use
  Company Number: US-ALLERGAN-1102293US

PATIENT
  Sex: Female

DRUGS (1)
  1. BOTOX COSMETIC [Suspect]
     Indication: SKIN WRINKLING
     Dosage: UNK
     Dates: start: 20110208, end: 20110208

REACTIONS (6)
  - INFLUENZA LIKE ILLNESS [None]
  - PAIN [None]
  - DIZZINESS [None]
  - ANXIETY [None]
  - FACIAL PAIN [None]
  - FATIGUE [None]
